FAERS Safety Report 8765939 (Version 5)
Quarter: 2013Q2

REPORT INFORMATION
  Report Type: Report from Study
  Country: JP (occurrence: JP)
  Receive Date: 20120904
  Receipt Date: 20130625
  Transmission Date: 20140414
  Serious: Yes (Hospitalization)
  Sender: FDA-Public Use
  Company Number: JP-009507513-2012SP033116

PATIENT
  Age: 68 Year
  Sex: Male
  Weight: 52 kg

DRUGS (30)
  1. PEGINTRON [Suspect]
     Indication: CHRONIC HEPATITIS C
     Dosage: 1.5 MICROGRAM PER KILOGRAM, QW
     Route: 058
     Dates: start: 20120307, end: 20120327
  2. PEGINTRON [Suspect]
     Dosage: 0.77 MICROGRAM PER KILOGRAM, QD
     Route: 058
     Dates: start: 20120328, end: 20120403
  3. PEGINTRON [Suspect]
     Dosage: 80 MICROGRAM, QW
     Route: 058
     Dates: start: 20120411, end: 20120509
  4. PEGINTRON [Suspect]
     Dosage: 40 MICROGRAM, QW
     Route: 058
     Dates: start: 20120516, end: 20120523
  5. PEGINTRON [Suspect]
     Dosage: 60 MICROGRAM, QW
     Route: 058
     Dates: start: 20120530, end: 20120530
  6. PEGINTRON [Suspect]
     Dosage: 40 MICROGRAM, QW
     Route: 058
     Dates: start: 20120613, end: 20120704
  7. REBETOL [Suspect]
     Indication: CHRONIC HEPATITIS C
     Dosage: 400 MG, QD
     Route: 048
     Dates: start: 20120307, end: 20120314
  8. REBETOL [Suspect]
     Dosage: 200 MG, QD
     Route: 048
     Dates: start: 20120315, end: 20120403
  9. REBETOL [Suspect]
     Dosage: 200 MG, QD
     Route: 048
     Dates: start: 20120516, end: 20120613
  10. REBETOL [Suspect]
     Dosage: 200 MG, QOD
     Route: 048
     Dates: start: 20120620, end: 20120706
  11. TELAVIC [Suspect]
     Indication: CHRONIC HEPATITIS C
     Dosage: 2250 MG, QD
     Route: 048
     Dates: start: 20120307, end: 20120322
  12. TELAVIC [Suspect]
     Dosage: 1500 MG, QD
     Route: 048
     Dates: start: 20120323, end: 20120403
  13. GLUCOBAY [Concomitant]
     Indication: DIABETES MELLITUS
     Dosage: 300 MG, QD,FORMULATION:POR
     Route: 048
     Dates: end: 20120705
  14. PLAVIX [Concomitant]
     Indication: CEREBRAL INFARCTION
     Dosage: 75 MG, QD,FORMULATION:POR
     Route: 048
     Dates: end: 20120705
  15. JANUVIA TABLETS 50MG [Concomitant]
     Indication: DIABETES MELLITUS
     Dosage: 50 MG, QD, POR
     Route: 048
  16. JANUVIA TABLETS 100MG [Concomitant]
     Indication: DIABETES MELLITUS
     Dosage: 100 MG, QD, POR
     Route: 048
     Dates: end: 20120705
  17. DEPAS [Concomitant]
     Indication: DEPRESSION
     Dosage: 1 MG, QD
     Route: 048
     Dates: end: 20120705
  18. ALLEGRA [Concomitant]
     Indication: URTICARIA
     Dosage: 60 MG, QD
     Route: 048
     Dates: end: 20120705
  19. ALLEGRA [Concomitant]
     Indication: PRURITUS
  20. URIEF [Concomitant]
     Indication: DYSURIA
     Dosage: 8 MG, QD
     Route: 048
     Dates: end: 20120705
  21. URIEF [Concomitant]
     Indication: BENIGN PROSTATIC HYPERPLASIA
  22. VESICARE [Concomitant]
     Indication: URGE INCONTINENCE
     Dosage: 2.5 MG, QD
     Route: 048
     Dates: end: 20120705
  23. VESICARE [Concomitant]
     Indication: POLLAKIURIA
  24. TOFRANIL [Concomitant]
     Indication: DEPRESSION
     Dosage: 10 MG, QD
     Route: 048
     Dates: end: 20120705
  25. MICARDIS [Concomitant]
     Indication: HYPERTENSION
     Dosage: 40 MG, QD,FORMULATION:POR
     Route: 048
     Dates: start: 20120329, end: 20120509
  26. TAKEPRON [Concomitant]
     Indication: GASTRITIS
     Dosage: 15 MG, QD,FORMULATION:POR
     Route: 048
     Dates: start: 20120329, end: 20120705
  27. TAKEPRON [Concomitant]
     Indication: GASTRIC ULCER
  28. PURSENNID (SENNA) [Concomitant]
     Indication: CONSTIPATION
     Dosage: 12 MG, QD,FORMULATION:POR
     Route: 048
     Dates: end: 20120705
  29. MAGMITT [Concomitant]
     Indication: CONSTIPATION
     Dosage: 660 MG, QD,FORMULATION:POR
     Route: 048
     Dates: end: 20120621
  30. ZYLORIC [Concomitant]
     Indication: PROPHYLAXIS
     Dosage: 100 MG, QD
     Route: 048

REACTIONS (1)
  - Anaemia [Unknown]
